FAERS Safety Report 23151646 (Version 4)
Quarter: 2023Q4

REPORT INFORMATION
  Report Type: Spontaneous
  Country: US (occurrence: US)
  Receive Date: 20231107
  Receipt Date: 20231218
  Transmission Date: 20240110
  Serious: Yes (Other)
  Sender: FDA-Public Use
  Company Number: US-JNJFOC-20231078107

PATIENT
  Age: 57 Year
  Sex: Male

DRUGS (1)
  1. TREMFYA [Suspect]
     Active Substance: GUSELKUMAB
     Indication: Psoriatic arthropathy
     Route: 058

REACTIONS (8)
  - Psoriatic arthropathy [Unknown]
  - Otorrhoea [Not Recovered/Not Resolved]
  - Depression [Unknown]
  - Unevaluable event [Unknown]
  - Psoriasis [Unknown]
  - Psoriasis [Not Recovered/Not Resolved]
  - Needle issue [Unknown]
  - Product dose omission issue [Unknown]

NARRATIVE: CASE EVENT DATE: 20230101
